FAERS Safety Report 18168903 (Version 5)
Quarter: 2023Q1

REPORT INFORMATION
  Report Type: Report from Study
  Country: US (occurrence: US)
  Receive Date: 20200819
  Receipt Date: 20230103
  Transmission Date: 20230418
  Serious: Yes (Other)
  Sender: FDA-Public Use
  Company Number: US-PFIZER INC-2016025306

PATIENT
  Age: 61 Year
  Sex: Female
  Weight: 74.83 kg

DRUGS (2)
  1. DILANTIN [Suspect]
     Active Substance: PHENYTOIN
     Indication: Epilepsy
     Dosage: 100 MILLIGRAM
     Route: 065
  2. DILANTIN [Suspect]
     Active Substance: PHENYTOIN
     Dosage: 100 MILLIGRAM, TID (START DATE: 12-JAN-2021)
     Route: 048

REACTIONS (5)
  - Seizure [Not Recovered/Not Resolved]
  - Amnesia [Unknown]
  - Limb injury [Unknown]
  - Head injury [Unknown]
  - Muscle spasms [Unknown]

NARRATIVE: CASE EVENT DATE: 20200930
